FAERS Safety Report 11846069 (Version 1)
Quarter: 2015Q4

REPORT INFORMATION
  Report Type: Spontaneous
  Country: US (occurrence: US)
  Receive Date: 20151217
  Receipt Date: 20151217
  Transmission Date: 20160305
  Serious: No
  Sender: FDA-Public Use
  Company Number: US-NOVOPROD-450893

PATIENT
  Age: 63 Year
  Sex: Female

DRUGS (6)
  1. LEVEMIR [Suspect]
     Active Substance: INSULIN DETEMIR
     Dosage: 45 U, BID
     Route: 058
     Dates: start: 2014
  2. LEVEMIR [Suspect]
     Active Substance: INSULIN DETEMIR
     Dosage: 35 U, BID
     Route: 058
     Dates: start: 2014
  3. LEVEMIR [Suspect]
     Active Substance: INSULIN DETEMIR
     Dosage: 25 U, BID
     Route: 058
  4. LEVEMIR [Suspect]
     Active Substance: INSULIN DETEMIR
     Dosage: 56 U IN THE MORNING; 46 U AT NIGHT
     Route: 058
     Dates: start: 2014
  5. AMLODIPINE [Concomitant]
     Active Substance: AMLODIPINE BESYLATE
     Indication: HYPERTENSION
     Dosage: 5 MG, QD
     Route: 048
  6. LEVEMIR [Suspect]
     Active Substance: INSULIN DETEMIR
     Indication: TYPE 1 DIABETES MELLITUS
     Dosage: 15 U, BID
     Route: 058
     Dates: start: 2014

REACTIONS (1)
  - Proteinuria [Not Recovered/Not Resolved]

NARRATIVE: CASE EVENT DATE: 201504
